FAERS Safety Report 7290013-7 (Version None)
Quarter: 2011Q1

REPORT INFORMATION
  Report Type: 
  Country: None (occurrence: None)
  Receive Date: 20110214
  Receipt Date: 20110203
  Transmission Date: 20110831
  Serious: Yes (Other)
  Sender: FDA-Public Use
  Company Number: US-ASTRAZENECA-2011SE06150

PATIENT
  Age: 39 Year
  Sex: Female
  Weight: 68 kg

DRUGS (10)
  1. PENICILLIN [Suspect]
     Route: 065
  2. DETROL LA [Concomitant]
     Route: 048
  3. VITAMIN B6 [Concomitant]
  4. CLONAZEPAM [Concomitant]
     Indication: ANXIETY
     Route: 055
  5. LYRICA [Suspect]
     Indication: FIBROMYALGIA
     Route: 048
     Dates: start: 20110119, end: 20110122
  6. TRAZODONE HCL [Concomitant]
     Indication: SLEEP DISORDER
     Route: 055
  7. CELEXA [Concomitant]
     Indication: DEPRESSION
     Route: 048
  8. ISONIAZID [Concomitant]
  9. NEXIUM [Suspect]
     Route: 048
  10. FLOVENT [Concomitant]
     Route: 055

REACTIONS (8)
  - OEDEMA PERIPHERAL [None]
  - EYE SWELLING [None]
  - PHARYNGEAL OEDEMA [None]
  - RASH [None]
  - HYPERSENSITIVITY [None]
  - SWELLING FACE [None]
  - RASH ERYTHEMATOUS [None]
  - URTICARIA [None]
